FAERS Safety Report 5915652-4 (Version None)
Quarter: 2008Q4

REPORT INFORMATION
  Report Type: 
  Country: None (occurrence: None)
  Receive Date: 20081010
  Receipt Date: 20080930
  Transmission Date: 20090506
  Serious: Yes (Other)
  Sender: FDA-Public Use
  Company Number: GB-JNJCH-2008025774

PATIENT
  Age: 6 Year
  Sex: Male

DRUGS (1)
  1. CALPOL SIX PLUS FASTMELT [Suspect]
     Indication: DRUG USE FOR UNKNOWN INDICATION
     Dosage: TEXT:UNKNOWN
     Route: 048

REACTIONS (1)
  - EPILEPSY [None]
